FAERS Safety Report 15132936 (Version 2)
Quarter: 2022Q1

REPORT INFORMATION
  Report Type: Spontaneous
  Country: CH (occurrence: CH)
  Receive Date: 20180712
  Receipt Date: 20220128
  Transmission Date: 20220423
  Serious: Yes (Life-Threatening, Hospitalization, Other)
  Sender: FDA-Public Use
  Company Number: CH-SM-2018-10139

PATIENT
  Age: 83 Year
  Sex: Male

DRUGS (26)
  1. ALLOPURINOL [Suspect]
     Active Substance: ALLOPURINOL
     Dosage: 200 MILLIGRAM DAILY;
     Route: 048
     Dates: end: 20180606
  2. ALLOPURINOL [Suspect]
     Active Substance: ALLOPURINOL
     Dosage: 100 MILLIGRAM DAILY;
     Route: 048
     Dates: start: 20180607
  3. PRAMIPEXOLE [Suspect]
     Active Substance: PRAMIPEXOLE
     Dosage: .125 MILLIGRAM DAILY;
     Route: 048
     Dates: end: 20180602
  4. CIPRALEX [Suspect]
     Active Substance: ESCITALOPRAM OXALATE
     Dosage: 10 MILLIGRAM DAILY;
     Route: 048
  5. PANTOPRAZOLE SODIUM [Suspect]
     Active Substance: PANTOPRAZOLE SODIUM
     Dosage: 40 MILLIGRAM DAILY;
     Route: 048
  6. LISINOPRIL [Suspect]
     Active Substance: LISINOPRIL
     Dosage: 20 MILLIGRAM DAILY;
     Route: 048
     Dates: end: 20180602
  7. METOPROLOL SUCCINATE [Suspect]
     Active Substance: METOPROLOL SUCCINATE
     Dosage: 50 MILLIGRAM DAILY;
     Route: 048
     Dates: end: 20180602
  8. PLAVIX [Suspect]
     Active Substance: CLOPIDOGREL BISULFATE
     Dosage: 75 MILLIGRAM DAILY;
     Route: 048
     Dates: end: 20180601
  9. PLAVIX [Suspect]
     Active Substance: CLOPIDOGREL BISULFATE
     Dosage: 75 MILLIGRAM DAILY;
     Route: 048
     Dates: start: 20180607
  10. PREDNISOLONE [Suspect]
     Active Substance: PREDNISOLONE
     Dosage: SPIRICORT, FILM-COATED TABLETS, 20 MG (PREDNISOLONE); 0.75-0-0.25-0, UNTIL 2 JUNE 2018
     Dates: end: 20180602
  11. TRAMADOL [Suspect]
     Active Substance: TRAMADOL
     Dosage: TRAMALA  TROPFEN (100 MG = 40 GTT) 100 MG/1 ML  ; AS NECESSARY
     Route: 048
     Dates: end: 20180529
  12. FENTANYL CITRATE [Suspect]
     Active Substance: FENTANYL CITRATE
     Dosage: IN TOTAL
     Route: 042
     Dates: start: 20180601, end: 20180601
  13. HALDOL [Suspect]
     Active Substance: HALOPERIDOL
     Dosage: IN TOTAL
     Route: 048
     Dates: start: 20180601, end: 20180601
  14. OXYCODONE HYDROCHLORIDE [Suspect]
     Active Substance: OXYCODONE HYDROCHLORIDE
     Dosage: AS NECESSARY
     Route: 048
     Dates: start: 20180529, end: 20180602
  15. MORPHINE HYDROCHLORIDE [Suspect]
     Active Substance: MORPHINE HYDROCHLORIDE
     Dosage: IN TOTAL
     Route: 048
     Dates: start: 20180530, end: 20180530
  16. MORPHINE HYDROCHLORIDE [Suspect]
     Active Substance: MORPHINE HYDROCHLORIDE
     Dosage: IN TOTAL
     Route: 048
     Dates: start: 20180602, end: 20180602
  17. QUETIAPINE [Suspect]
     Active Substance: QUETIAPINE
     Dosage: IN TOTAL
     Route: 048
     Dates: start: 20180601, end: 20180601
  18. QUETIAPINE [Suspect]
     Active Substance: QUETIAPINE
     Dosage: IN TOTAL
     Route: 048
     Dates: start: 20180602, end: 20180602
  19. QUETIAPINE [Suspect]
     Active Substance: QUETIAPINE
     Dosage: 25 MILLIGRAM DAILY;
     Route: 048
     Dates: start: 20180607
  20. VALIUM [Suspect]
     Active Substance: DIAZEPAM
     Dosage: AS NECESSARY
     Route: 048
     Dates: start: 20180601, end: 20180607
  21. ASPIRIN [Concomitant]
     Active Substance: ASPIRIN
     Dosage: 100 MILLIGRAM DAILY;
     Route: 048
  22. ATORVASTATIN [Concomitant]
     Active Substance: ATORVASTATIN
     Dosage: 20 MILLIGRAM DAILY;
     Route: 048
  23. DAFALGAN [Concomitant]
     Active Substance: ACETAMINOPHEN
     Dosage: 1500 MILLIGRAM DAILY;
     Route: 048
     Dates: end: 20180602
  24. SPIRIVA [Concomitant]
     Active Substance: TIOTROPIUM BROMIDE MONOHYDRATE
     Dosage: 18 MICROGRAM DAILY;
  25. TORSEMIDE [Concomitant]
     Active Substance: TORSEMIDE
     Dosage: 5 MILLIGRAM DAILY;
     Dates: end: 20180602
  26. METAMIZOLE [Concomitant]
     Active Substance: METAMIZOLE
     Dosage: AS NECESSARY
     Route: 048
     Dates: end: 20180531

REACTIONS (2)
  - Delirium [Recovering/Resolving]
  - Disturbance in attention [Recovering/Resolving]

NARRATIVE: CASE EVENT DATE: 20180601
